FAERS Safety Report 4727639-8 (Version None)
Quarter: 2005Q3

REPORT INFORMATION
  Report Type: 
  Country: None (occurrence: None)
  Receive Date: 20050726
  Receipt Date: 20050726
  Transmission Date: 20060218
  Serious: Yes (Other)
  Sender: FDA-Public Use
  Company Number: None

PATIENT
  Age: 51 Year
  Sex: Male
  Weight: 107 kg

DRUGS (1)
  1. SEROQUEL [Suspect]
     Dosage: 25 MG HS ORAL
     Route: 048

REACTIONS (3)
  - CONVULSION [None]
  - FALL [None]
  - SKIN LACERATION [None]
